FAERS Safety Report 10552297 (Version 1)
Quarter: 2014Q4

REPORT INFORMATION
  Report Type: Spontaneous
  Country: US (occurrence: None)
  Receive Date: 20141028
  Receipt Date: 20141028
  Transmission Date: 20150529
  Serious: Yes (Hospitalization)
  Sender: FDA-Public Use
  Company Number: None

PATIENT
  Age: 73 Year
  Sex: Male

DRUGS (1)
  1. DILTIAZEM [Suspect]
     Active Substance: DILTIAZEM
     Indication: ATRIAL FIBRILLATION
     Route: 048
     Dates: start: 20131031, end: 20140909

REACTIONS (5)
  - Tremor [None]
  - Lethargy [None]
  - Hypotension [None]
  - Blood glucose increased [None]
  - Unresponsive to stimuli [None]

NARRATIVE: CASE EVENT DATE: 20140910
